FAERS Safety Report 4408168-8 (Version None)
Quarter: 2004Q3

REPORT INFORMATION
  Report Type: 
  Country: None (occurrence: None)
  Receive Date: 20040726
  Receipt Date: 20040723
  Transmission Date: 20050211
  Serious: Yes (Life-Threatening)
  Sender: FDA-Public Use
  Company Number: PHBS2004ES09708

PATIENT
  Age: 8 Year
  Sex: Male

DRUGS (5)
  1. TRILEPTAL [Suspect]
     Indication: EPILEPSY
     Dosage: 12 ML/D
     Route: 048
     Dates: start: 20030501, end: 20040517
  2. DEPAKINE [Suspect]
     Indication: EPILEPSY
     Dosage: 800 MG/D
     Route: 048
     Dates: end: 20040517
  3. NOIAFREN [Suspect]
     Indication: EPILEPSY
     Dosage: 30 MG/D
     Route: 048
     Dates: end: 20040517
  4. ALBUTEROL SULFATE [Concomitant]
     Route: 065
     Dates: start: 20040516, end: 20040517
  5. BUDESONIDE [Concomitant]
     Route: 065
     Dates: start: 20040516, end: 20040517

REACTIONS (6)
  - ALANINE AMINOTRANSFERASE INCREASED [None]
  - ASPARTATE AMINOTRANSFERASE INCREASED [None]
  - BLOOD LACTATE DEHYDROGENASE INCREASED [None]
  - HEPATITIS [None]
  - METABOLIC DISORDER [None]
  - PROTHROMBIN LEVEL DECREASED [None]
